FAERS Safety Report 18373217 (Version 3)
Quarter: 2020Q4

REPORT INFORMATION
  Report Type: Report from Study
  Country: US (occurrence: US)
  Receive Date: 20201012
  Receipt Date: 20201105
  Transmission Date: 20210114
  Serious: Yes (Other)
  Sender: FDA-Public Use
  Company Number: US-UNITED THERAPEUTICS-UNT-2020-015290

PATIENT
  Age: 48 Year
  Sex: Female
  Weight: 82.09 kg

DRUGS (5)
  1. VELETRI [Suspect]
     Active Substance: EPOPROSTENOL
     Indication: PULMONARY ARTERIAL HYPERTENSION
     Dosage: 37.5 NG/KG, ONE IN ONE MINUTE
     Route: 042
     Dates: end: 2020
  2. TADALAFIL. [Concomitant]
     Active Substance: TADALAFIL
     Indication: PRODUCT USED FOR UNKNOWN INDICATION
     Dosage: UNK
     Route: 065
  3. TREPROSTINIL SODIUM (IV) [Suspect]
     Active Substance: TREPROSTINIL SODIUM
     Indication: PULMONARY ARTERIAL HYPERTENSION
     Dosage: UNK, CONTINUING
     Route: 041
     Dates: start: 20200930
  4. TREPROSTINIL SODIUM (IV) [Suspect]
     Active Substance: TREPROSTINIL SODIUM
     Dosage: 0.048 ?G/KG, CONTINUING
     Route: 041
     Dates: start: 2020
  5. OPSUMIT [Concomitant]
     Active Substance: MACITENTAN
     Indication: PRODUCT USED FOR UNKNOWN INDICATION
     Dosage: UNK
     Route: 065

REACTIONS (11)
  - Feeling abnormal [Unknown]
  - Right ventricular dysfunction [Unknown]
  - Muscle spasms [Recovering/Resolving]
  - Product preparation error [Unknown]
  - Pulmonary arterial pressure increased [Unknown]
  - Headache [Unknown]
  - Wrong dose [Unknown]
  - Neuralgia [Unknown]
  - Pain [Unknown]
  - Psoriatic arthropathy [Unknown]
  - Pain in extremity [Not Recovered/Not Resolved]

NARRATIVE: CASE EVENT DATE: 2020
